FAERS Safety Report 5299938-5 (Version None)
Quarter: 2007Q2

REPORT INFORMATION
  Report Type: 
  Country: None (occurrence: None)
  Receive Date: 20070417
  Receipt Date: 20070405
  Transmission Date: 20071010
  Serious: Yes (Hospitalization)
  Sender: FDA-Public Use
  Company Number: FR-PFIZER INC-2007027371

PATIENT
  Age: 56 Year
  Sex: Female

DRUGS (4)
  1. TAHOR [Suspect]
     Route: 048
  2. BACTRIM DS [Suspect]
     Indication: OSTEITIS
     Route: 048
     Dates: start: 20070301, end: 20070313
  3. DEROXAT [Concomitant]
  4. TEGRETOL [Concomitant]

REACTIONS (7)
  - BACTERAEMIA [None]
  - CYTOLYTIC HEPATITIS [None]
  - HEADACHE [None]
  - INFLUENZA LIKE ILLNESS [None]
  - MYALGIA [None]
  - PYREXIA [None]
  - RASH [None]
